FAERS Safety Report 4772491-8 (Version None)
Quarter: 2005Q3

REPORT INFORMATION
  Report Type: 
  Country: None (occurrence: None)
  Receive Date: 20050916
  Receipt Date: 20050916
  Transmission Date: 20060218
  Serious: No
  Sender: FDA-Public Use
  Company Number: None

PATIENT
  Age: 60 Year
  Sex: Male

DRUGS (6)
  1. DAPTOMYCIN [Suspect]
     Dosage: 570MG
  2. ITRACONAZOLE [Concomitant]
  3. LISINOPRIL [Concomitant]
  4. MAGNESIUM [Concomitant]
  5. NEUTRA PHOS [Concomitant]
  6. PANTOPRAZOLE [Concomitant]

REACTIONS (6)
  - CARDIOVASCULAR DISORDER [None]
  - HYPERTENSION [None]
  - HYPOTENSION [None]
  - PYREXIA [None]
  - RESPIRATORY DISTRESS [None]
  - SKIN DISORDER [None]
